FAERS Safety Report 7323732-4 (Version None)
Quarter: 2011Q1

REPORT INFORMATION
  Report Type: 
  Country: None (occurrence: None)
  Receive Date: 20110301
  Receipt Date: 20110207
  Transmission Date: 20110831
  Serious: Yes (Hospitalization)
  Sender: FDA-Public Use
  Company Number: US-BAYER-201019096NA

PATIENT
  Sex: Female
  Weight: 75 kg

DRUGS (10)
  1. YAZ [Suspect]
  2. VALTREX [Concomitant]
  3. RANITIDINE [Concomitant]
  4. YASMIN [Suspect]
     Dosage: UNK
     Dates: start: 20031218, end: 20051217
  5. EFFEXOR XR [Concomitant]
     Dosage: 150 MG, QD
     Route: 048
  6. NAPROXEN [Concomitant]
  7. ADVIL LIQUI-GELS [Concomitant]
  8. LEXAPRO [Concomitant]
     Dosage: 10 MG, QD
     Route: 048
  9. MOTRIN [Concomitant]
  10. YAZ [Suspect]
     Indication: ORAL CONTRACEPTION
     Dosage: UNK
     Route: 048
     Dates: start: 20061022, end: 20090723

REACTIONS (11)
  - ABDOMINAL PAIN [None]
  - GALLBLADDER DISORDER [None]
  - CHOLELITHIASIS [None]
  - CHOLECYSTITIS INFECTIVE [None]
  - CHOLECYSTITIS CHRONIC [None]
  - MURPHY'S SIGN POSITIVE [None]
  - CHOLECYSTITIS ACUTE [None]
  - NAUSEA [None]
  - DYSPEPSIA [None]
  - WHITE BLOOD CELL COUNT INCREASED [None]
  - VOMITING [None]
